FAERS Safety Report 24191959 (Version 1)
Quarter: 2024Q3

REPORT INFORMATION
  Report Type: Spontaneous
  Country: MK (occurrence: MK)
  Receive Date: 20240809
  Receipt Date: 20240809
  Transmission Date: 20241016
  Serious: Yes (Other)
  Sender: STRIDES
  Company Number: MK-STRIDES ARCOLAB LIMITED-2024SP009877

PATIENT
  Age: 32 Year
  Sex: Female

DRUGS (2)
  1. METHYLDOPA [Suspect]
     Active Substance: METHYLDOPA
     Indication: Gestational hypertension
     Dosage: 1 DOSAGE FORM, BID (1 TABLET TWICE DAILY)
     Route: 065
  2. ENOXAPARIN [Suspect]
     Active Substance: ENOXAPARIN
     Indication: Anticoagulant therapy
     Dosage: 40 MILLIGRAM (40MG AMPOULE ADMINISTERED 1?1)
     Route: 065

REACTIONS (2)
  - Hypoxia [Unknown]
  - Maternal exposure during pregnancy [Unknown]
